FAERS Safety Report 9305670 (Version 1)
Quarter: 2013Q2

REPORT INFORMATION
  Report Type: Spontaneous
  Country: US (occurrence: None)
  Receive Date: 20130522
  Receipt Date: 20130522
  Transmission Date: 20140414
  Serious: Yes (Life-Threatening, Hospitalization, Disabling)
  Sender: FDA-Public Use
  Company Number: None

PATIENT
  Age: 68 Year
  Sex: Male
  Weight: 113.4 kg

DRUGS (1)
  1. XGEVA [Suspect]
     Indication: PROSTATE CANCER
     Dosage: 1 SHOT EACH IN THE STOMACH 1 PER MONTH SQ
     Route: 058
     Dates: start: 20111001, end: 20120314

REACTIONS (5)
  - Malaise [None]
  - Osteonecrosis [None]
  - Deformity [None]
  - Pain [None]
  - Unevaluable event [None]
